FAERS Safety Report 23816698 (Version 1)
Quarter: 2024Q2

REPORT INFORMATION
  Report Type: Spontaneous
  Country: IN (occurrence: IN)
  Receive Date: 20240504
  Receipt Date: 20240504
  Transmission Date: 20240716
  Serious: Yes (Other)
  Sender: FDA-Public Use
  Company Number: IN-GLENMARK PHARMACEUTICALS-2024GMK090495

PATIENT

DRUGS (1)
  1. TACROLIMUS [Suspect]
     Active Substance: TACROLIMUS
     Indication: Immunosuppressant drug therapy
     Dosage: UNK
     Route: 065

REACTIONS (5)
  - Immunosuppressant drug level decreased [Unknown]
  - Left ventricular dysfunction [Recovered/Resolved]
  - Right ventricular dysfunction [Unknown]
  - Transplant rejection [Unknown]
  - Syncope [Unknown]
